FAERS Safety Report 6358002-4 (Version None)
Quarter: 2009Q3

REPORT INFORMATION
  Report Type: 
  Country: None (occurrence: None)
  Receive Date: 20090916
  Receipt Date: 20090908
  Transmission Date: 20100115
  Serious: Yes (Other)
  Sender: FDA-Public Use
  Company Number: FR-TEVA-208339ISR

PATIENT
  Sex: Male
  Weight: 120 kg

DRUGS (9)
  1. COPAXONE [Suspect]
     Indication: MULTIPLE SCLEROSIS
     Route: 058
     Dates: start: 20050101
  2. INSULIN [Concomitant]
     Indication: DIABETES MELLITUS
     Route: 058
     Dates: start: 20090401
  3. METFORMIN HCL [Concomitant]
     Indication: DIABETES MELLITUS
     Route: 048
     Dates: start: 19970101
  4. GLUCOR [Concomitant]
     Indication: DIABETES MELLITUS
     Route: 048
     Dates: start: 19970101
  5. AMAREL [Concomitant]
     Indication: DIABETES MELLITUS
     Route: 048
  6. SIMVASTATIN [Concomitant]
     Indication: HYPERCHOLESTEROLAEMIA
     Route: 048
  7. TAREG [Concomitant]
     Indication: HYPERTENSION
     Route: 048
  8. ZANIDIP [Concomitant]
     Indication: HYPERTENSION
     Route: 048
  9. KARDEGIC [Concomitant]
     Route: 048

REACTIONS (1)
  - NODULE ON EXTREMITY [None]
